FAERS Safety Report 7903808-0 (Version None)
Quarter: 2011Q4

REPORT INFORMATION
  Report Type: 
  Country: None (occurrence: None)
  Receive Date: 20111109
  Receipt Date: 20110815
  Transmission Date: 20120403
  Serious: No
  Sender: FDA-Public Use
  Company Number: US-BAYER-2011-061214

PATIENT
  Age: 56 Year
  Sex: Female

DRUGS (3)
  1. CLIMARA [Suspect]
     Dosage: UNK
     Dates: start: 20110101
  2. PROMETRIUM [Concomitant]
  3. CLIMARA [Suspect]
     Dosage: 25 MCG/24HR, UNK
     Dates: start: 20091101

REACTIONS (3)
  - HOT FLUSH [None]
  - NO THERAPEUTIC RESPONSE [None]
  - UNEVALUABLE EVENT [None]
